FAERS Safety Report 15650277 (Version 1)
Quarter: 2018Q4

REPORT INFORMATION
  Report Type: Spontaneous
  Country: PT (occurrence: PT)
  Receive Date: 20181123
  Receipt Date: 20181123
  Transmission Date: 20190205
  Serious: Yes (Hospitalization, Other)
  Sender: FDA-Public Use
  Company Number: PT-ACCORD-092887

PATIENT
  Age: 58 Year
  Sex: Male

DRUGS (3)
  1. CISPLATIN. [Suspect]
     Active Substance: CISPLATIN
     Indication: NEUROENDOCRINE TUMOUR OF THE LUNG
  2. OCTREOTIDE/OCTREOTIDE ACETATE [Concomitant]
     Indication: NEUROENDOCRINE TUMOUR OF THE LUNG
     Dosage: CYCLE
  3. ETOPOSIDE. [Concomitant]
     Active Substance: ETOPOSIDE
     Indication: NEUROENDOCRINE TUMOUR OF THE LUNG

REACTIONS (1)
  - Renal tubular disorder [Recovered/Resolved]
